FAERS Safety Report 7604816-X (Version None)
Quarter: 2011Q3

REPORT INFORMATION
  Report Type: 
  Country: None (occurrence: None)
  Receive Date: 20110712
  Receipt Date: 20110705
  Transmission Date: 20111222
  Serious: Yes (Hospitalization)
  Sender: FDA-Public Use
  Company Number: AT-B.I. PHARMACEUTICALS,INC./RIDGEFIELD-2010-AP-00326AP

PATIENT
  Sex: Female
  Weight: 92 kg

DRUGS (2)
  1. PRADAXA [Suspect]
     Indication: PROPHYLAXIS
  2. PRADAXA [Suspect]
     Indication: THROMBOSIS
     Dosage: 110 MG
     Route: 048
     Dates: start: 20100702, end: 20100702

REACTIONS (2)
  - DRUG INEFFECTIVE [None]
  - DEEP VEIN THROMBOSIS [None]
